FAERS Safety Report 6622763-7 (Version None)
Quarter: 2010Q1

REPORT INFORMATION
  Report Type: 
  Country: None (occurrence: None)
  Receive Date: 20100310
  Receipt Date: 20100302
  Transmission Date: 20100710
  Serious: Yes (Other)
  Sender: FDA-Public Use
  Company Number: JP-WYE-H13503310

PATIENT
  Sex: Female
  Weight: 36 kg

DRUGS (11)
  1. ZOSYN [Suspect]
     Indication: PNEUMONIA
     Route: 041
     Dates: start: 20100129, end: 20100201
  2. FERROMIA [Concomitant]
     Indication: ANAEMIA
     Route: 048
  3. CINAL [Concomitant]
     Indication: ANAEMIA
     Route: 048
  4. PREDONINE [Concomitant]
     Indication: RHEUMATOID ARTHRITIS
     Route: 048
  5. NORVASC [Concomitant]
     Indication: HYPERTENSION
     Route: 048
  6. SEDIEL [Concomitant]
     Indication: INSOMNIA
     Route: 048
  7. ALFACALCIDOL [Concomitant]
     Indication: RHEUMATOID ARTHRITIS
     Dosage: 0.5 MCG/DAY
     Route: 048
  8. ERYTHROMYCIN ETHYLSUCCINATE [Concomitant]
     Indication: RHEUMATOID ARTHRITIS
     Route: 048
  9. NABOAL - SLOW RELEASE [Concomitant]
     Indication: RHEUMATOID ARTHRITIS
     Route: 048
  10. TARGOCID [Concomitant]
     Indication: OSTEOMYELITIS
     Dosage: 200-400 MG/DAY
     Route: 041
     Dates: start: 20100119, end: 20100201
  11. GASTER [Concomitant]
     Route: 048

REACTIONS (6)
  - ALANINE AMINOTRANSFERASE INCREASED [None]
  - ASPARTATE AMINOTRANSFERASE INCREASED [None]
  - BLOOD ALKALINE PHOSPHATASE INCREASED [None]
  - BLOOD LACTATE DEHYDROGENASE INCREASED [None]
  - GAMMA-GLUTAMYLTRANSFERASE INCREASED [None]
  - HEPATIC FUNCTION ABNORMAL [None]
